FAERS Safety Report 4852209-0 (Version None)
Quarter: 2005Q4

REPORT INFORMATION
  Report Type: 
  Country: None (occurrence: None)
  Receive Date: 20051213
  Receipt Date: 20051206
  Transmission Date: 20060501
  Serious: Yes (Hospitalization)
  Sender: FDA-Public Use
  Company Number: JP-JPN-A20052992

PATIENT
  Age: 31 Year
  Sex: Male
  Weight: 89 kg

DRUGS (5)
  1. ZEFIX [Suspect]
     Indication: HEPATITIS B
     Route: 048
     Dates: start: 20051107
  2. ACINON [Suspect]
     Route: 048
     Dates: start: 20051128
  3. LACTULOSE [Concomitant]
     Route: 048
  4. ALLOID G [Concomitant]
     Route: 048
  5. GASTER D [Concomitant]
     Route: 048
     Dates: start: 20051107, end: 20051127

REACTIONS (3)
  - BLOOD CREATININE INCREASED [None]
  - BLOOD UREA INCREASED [None]
  - RENAL FAILURE ACUTE [None]
